FAERS Safety Report 23239367 (Version 1)
Quarter: 2023Q4

REPORT INFORMATION
  Report Type: Spontaneous
  Country: DE (occurrence: DE)
  Receive Date: 20231129
  Receipt Date: 20231129
  Transmission Date: 20240109
  Serious: Yes (Other)
  Sender: FDA-Public Use
  Company Number: DE-EMBRYOTOX-202300964

PATIENT
  Sex: Male
  Weight: 4.3 kg

DRUGS (1)
  1. OMEPRAZOLE [Suspect]
     Active Substance: OMEPRAZOLE
     Indication: Product used for unknown indication
     Dosage: 10 [MG/D ]
     Route: 064
     Dates: start: 20160316, end: 20161222

REACTIONS (2)
  - Enamel anomaly [Not Recovered/Not Resolved]
  - Foetal exposure during pregnancy [Unknown]
